FAERS Safety Report 12455618 (Version 1)
Quarter: 2016Q2

REPORT INFORMATION
  Report Type: Spontaneous
  Country: US (occurrence: None)
  Receive Date: 20160609
  Receipt Date: 20160609
  Transmission Date: 20160815
  Serious: Yes (Life-Threatening, Hospitalization)
  Sender: FDA-Public Use
  Company Number: None

PATIENT
  Age: 57 Year
  Sex: Male
  Weight: 106.8 kg

DRUGS (2)
  1. SAXAGLIPTIN [Suspect]
     Active Substance: SAXAGLIPTIN
     Indication: DIABETES MELLITUS
     Route: 048
     Dates: start: 20160205, end: 20160606
  2. SAXAGLIPTIN [Suspect]
     Active Substance: SAXAGLIPTIN
     Indication: HYPERTENSION
     Route: 048
     Dates: start: 20160205, end: 20160606

REACTIONS (1)
  - Pancreatitis acute [None]

NARRATIVE: CASE EVENT DATE: 20160606
